FAERS Safety Report 21047133 (Version 1)
Quarter: 2022Q3

REPORT INFORMATION
  Report Type: Report from Study
  Country: NL (occurrence: NL)
  Receive Date: 20220706
  Receipt Date: 20220706
  Transmission Date: 20221027
  Serious: Yes (Hospitalization, Other)
  Sender: FDA-Public Use
  Company Number: NL-009507513-1610NLD000875

PATIENT
  Age: 53 Year
  Sex: Male
  Weight: 76 kg

DRUGS (12)
  1. TEMOZOLOMIDE [Suspect]
     Active Substance: TEMOZOLOMIDE
     Indication: Glioblastoma
     Dosage: 75 MILLIGRAM/SQ. METER, QD 155 MG, QD (1 IN 1 D)
     Route: 048
     Dates: start: 20160530, end: 20160708
  2. TEMOZOLOMIDE [Suspect]
     Active Substance: TEMOZOLOMIDE
     Dosage: 150 MILLIGRAM/SQ. METER, QD, (1 IN 1 D)
     Route: 048
     Dates: start: 20200816, end: 20200820
  3. TEMOZOLOMIDE [Suspect]
     Active Substance: TEMOZOLOMIDE
     Dosage: 200 MILLIGRAM/SQ. METER, QD
     Route: 048
     Dates: start: 20160914, end: 20170108
  4. DEPATUXIZUMAB MAFODOTIN [Suspect]
     Active Substance: DEPATUXIZUMAB MAFODOTIN
     Indication: Glioblastoma multiforme
     Dosage: 2 MILLIGRAM/KILOGRAM, 1 IN 1 WK (DAY 1 OF WEEKS 1,3 AND 5)
     Route: 042
     Dates: start: 20160530, end: 20160530
  5. DEPATUXIZUMAB MAFODOTIN [Suspect]
     Active Substance: DEPATUXIZUMAB MAFODOTIN
     Dosage: 1.25 MILLIGRAM/KILOGRAM, 1 IN 1 WK (DAY 1 AND DAY 15 OF EACH 28-DAY CYCLE)
     Route: 042
     Dates: start: 20160815
  6. LORAZEPAM [Concomitant]
     Active Substance: LORAZEPAM
     Indication: Prophylaxis
     Dosage: 2.5 MILLIGRAM
     Route: 048
     Dates: start: 20170607
  7. HEMP [Concomitant]
     Active Substance: HEMP
     Indication: Pain
     Dosage: 3 UNK, QD  (3 IN 1D)
     Route: 048
     Dates: start: 20160517
  8. MELATONIN [Concomitant]
     Active Substance: MELATONIN
     Indication: Prophylaxis
     Dosage: 5 MILLIGRAM, QD
     Route: 065
     Dates: start: 20170708
  9. CARBOMER [Concomitant]
     Active Substance: CARBOMER
     Indication: Dry eye
     Dosage: UNK, QD DAILY DOSE: AS NEEDED (1 IN 1 DAY)
     Route: 047
     Dates: start: 20160614
  10. ZOPICLONE [Concomitant]
     Active Substance: ZOPICLONE
     Indication: Insomnia
     Dosage: 7.5 MG, QD (1 IN 1)
     Route: 048
     Dates: start: 20160429
  11. DEXAMETHASONE [Concomitant]
     Active Substance: DEXAMETHASONE
     Indication: Prophylaxis
     Dosage: 3 UNK, QD, 1-2 GTTS, TID (CYCLE 1 DAY 1)
     Route: 065
     Dates: start: 20160813, end: 20160820
  12. DURA TEARS [Concomitant]
     Indication: Product used for unknown indication
     Dosage: UNK, PRN 1 AS REQUIRED
     Route: 047
     Dates: start: 20160614

REACTIONS (1)
  - Epilepsy [Recovered/Resolved]

NARRATIVE: CASE EVENT DATE: 20160814
